FAERS Safety Report 21405338 (Version 1)
Quarter: 2022Q4

REPORT INFORMATION
  Report Type: Spontaneous
  Country: RU (occurrence: None)
  Receive Date: 20221004
  Receipt Date: 20221004
  Transmission Date: 20230112
  Serious: Yes (Other)
  Sender: FDA-Public Use
  Company Number: RU-ROCHE-3188067

PATIENT
  Sex: Female

DRUGS (1)
  1. OCREVUS [Suspect]
     Active Substance: OCRELIZUMAB
     Indication: Product used for unknown indication
     Route: 041

REACTIONS (9)
  - Loss of consciousness [Unknown]
  - Dizziness [Unknown]
  - Nausea [Unknown]
  - Dyspnoea [Unknown]
  - Peripheral coldness [Unknown]
  - Tremor [Unknown]
  - Feeling abnormal [Unknown]
  - Malaise [Unknown]
  - Body temperature increased [Unknown]
